FAERS Safety Report 22110027 (Version 1)
Quarter: 2023Q1

REPORT INFORMATION
  Report Type: Spontaneous
  Country: US (occurrence: US)
  Receive Date: 20230317
  Receipt Date: 20230317
  Transmission Date: 20230417
  Serious: No
  Sender: FDA-Public Use
  Company Number: US-TEVA-2023-US-2862617

PATIENT
  Sex: Female

DRUGS (29)
  1. PRAVASTATIN [Suspect]
     Active Substance: PRAVASTATIN
     Indication: Product used for unknown indication
     Dosage: 20 MG
     Route: 065
     Dates: start: 20200717, end: 20210725
  2. PRAVASTATIN [Suspect]
     Active Substance: PRAVASTATIN
     Dosage: 20 MG, STOPPED DURING PAXLOVID
     Dates: start: 20220528, end: 20220622
  3. PRAVASTATIN [Suspect]
     Active Substance: PRAVASTATIN
     Dosage: 20 MG
     Dates: start: 20221022, end: 20221108
  4. ROSUVASTATIN [Suspect]
     Active Substance: ROSUVASTATIN
     Indication: Product used for unknown indication
     Dosage: 5 MG, ONE TAB EVERY MON + FRI
     Route: 065
     Dates: start: 20230106, end: 20230128
  5. COVID Vaccine [Concomitant]
     Indication: Product used for unknown indication
     Dosage: PFIZER COVID VACCINE EN5318
     Dates: start: 20210127
  6. COVID Vaccine [Concomitant]
     Dosage: PFIZER COVID VACCINE EN6198
     Dates: start: 20210220
  7. COVID Vaccine [Concomitant]
     Dosage: PFIZER COVID VACCINE 8020FH
     Dates: start: 20211015
  8. COVID Vaccine [Concomitant]
     Dosage: BIVALENT PFIZER COVID VACCINE GH9703
     Dates: start: 20221122
  9. PAXLOVID [Concomitant]
     Active Substance: NIRMATRELVIR\RITONAVIR
     Indication: COVID-19
     Dates: start: 20220609, end: 20220615
  10. CARVEDILOL [Concomitant]
     Active Substance: CARVEDILOL
     Indication: Product used for unknown indication
     Dosage: 25 MILLIGRAM DAILY;
     Dates: start: 20180911, end: 20220701
  11. CARVEDILOL [Concomitant]
     Active Substance: CARVEDILOL
     Dosage: 36.5 MILLIGRAM DAILY;
     Dates: start: 20220702, end: 20221219
  12. CARVEDILOL [Concomitant]
     Active Substance: CARVEDILOL
     Dosage: 50 MILLIGRAM DAILY;
     Dates: start: 20221220
  13. LIOTHYRONINE [Concomitant]
     Active Substance: LIOTHYRONINE
     Indication: Product used for unknown indication
     Dosage: 25 MICROGRAM DAILY;
     Dates: start: 19900101
  14. LISINOPRIL [Concomitant]
     Active Substance: LISINOPRIL
     Indication: Product used for unknown indication
     Dosage: 5 MILLIGRAM DAILY;
     Dates: start: 20220602, end: 20220701
  15. LISINOPRIL [Concomitant]
     Active Substance: LISINOPRIL
     Dosage: 5 MILLIGRAM DAILY;
     Dates: start: 20180911, end: 20210930
  16. CLOPIDOGREL [Concomitant]
     Active Substance: CLOPIDOGREL BISULFATE
     Indication: Product used for unknown indication
     Dosage: 75 MILLIGRAM DAILY;
     Dates: start: 20180911, end: 20220512
  17. DEXAMETHASONE [Concomitant]
     Active Substance: DEXAMETHASONE
     Indication: Product used for unknown indication
     Dosage: INJECTION OF RIGHT HIP
     Dates: start: 20210322
  18. DEXAMETHASONE [Concomitant]
     Active Substance: DEXAMETHASONE
     Dosage: INJECTION OF RIGHT WRIST
     Dates: start: 20210505
  19. DEXAMETHASONE [Concomitant]
     Active Substance: DEXAMETHASONE
     Dosage: INJECTION OF RIGHT HIP
     Dates: start: 20220114
  20. DEXAMETHASONE [Concomitant]
     Active Substance: DEXAMETHASONE
     Dosage: INJECTION OF RIGHT HIP
     Dates: start: 20230220
  21. METHYLPREDNISOLONE [Concomitant]
     Active Substance: METHYLPREDNISOLONE
     Indication: Sinusitis
     Dosage: 4 MG
     Dates: start: 20220223, end: 20220311
  22. SULFAMETHOXAZOLE\TRIMETHOPRIM [Concomitant]
     Active Substance: SULFAMETHOXAZOLE\TRIMETHOPRIM
     Indication: Sinusitis
     Dates: start: 20220223, end: 20220315
  23. AMOXICILLIN [Concomitant]
     Active Substance: AMOXICILLIN
     Indication: Sinusitis
     Dates: start: 20220401, end: 20220410
  24. Z pac [Concomitant]
     Indication: Sinusitis
     Dates: start: 20220625, end: 20220629
  25. CIPROFLOXACIN [Concomitant]
     Active Substance: CIPROFLOXACIN
     Indication: Diverticulitis
     Dosage: 500 MG
     Dates: start: 20220728, end: 20220804
  26. AMOXICILLIN\CLAVULANATE POTASSIUM [Concomitant]
     Active Substance: AMOXICILLIN\CLAVULANATE POTASSIUM
     Indication: Diverticulitis
     Dates: start: 20220804, end: 20220814
  27. DOXYCYCLINE [Concomitant]
     Active Substance: DOXYCYCLINE
     Indication: Nail infection
     Dosage: 200 MILLIGRAM DAILY;
     Dates: start: 20221231, end: 20230110
  28. NALTREXONE [Concomitant]
     Active Substance: NALTREXONE
     Indication: Pain
     Dosage: GRADUALLY TO 4.5 MG QD
     Dates: start: 20220922, end: 20221101
  29. CANNABIDIOL\HERBALS [Concomitant]
     Active Substance: CANNABIDIOL\HERBALS
     Indication: Pain
     Dosage: 49 MILLIGRAM DAILY;
     Dates: start: 20220906, end: 20221205

REACTIONS (2)
  - Rash [Unknown]
  - Pruritus [Unknown]

NARRATIVE: CASE EVENT DATE: 20210101
